FAERS Safety Report 19655609 (Version 1)
Quarter: 2021Q3

REPORT INFORMATION
  Report Type: Spontaneous
  Country: US (occurrence: US)
  Receive Date: 20210803
  Receipt Date: 20210803
  Transmission Date: 20211014
  Serious: Yes (Death)
  Sender: FDA-Public Use
  Company Number: None

PATIENT
  Age: 67 Year
  Sex: Male
  Weight: 68 kg

DRUGS (2)
  1. VICKS VAPORUB [Suspect]
     Active Substance: CAMPHOR (SYNTHETIC)\EUCALYPTUS OIL\MENTHOL
     Indication: COUGH
  2. VICKS VAPOSTEAM [Suspect]
     Active Substance: CAMPHOR
     Indication: COUGH

REACTIONS (2)
  - Pneumonia lipoid [None]
  - Respiratory distress [None]

NARRATIVE: CASE EVENT DATE: 20210526
